FAERS Safety Report 21340012 (Version 9)
Quarter: 2023Q1

REPORT INFORMATION
  Report Type: Spontaneous
  Country: CA (occurrence: CA)
  Receive Date: 20220915
  Receipt Date: 20230317
  Transmission Date: 20230418
  Serious: Yes (Other)
  Sender: FDA-Public Use
  Company Number: CA-CELLTRION INC.-2022CA014719

PATIENT

DRUGS (14)
  1. INFLECTRA [Suspect]
     Active Substance: INFLIXIMAB-DYYB
     Indication: Crohn^s disease
     Dosage: 400 MG, EVERY 6 WEEK
     Route: 042
     Dates: start: 20210213
  2. INFLECTRA [Suspect]
     Active Substance: INFLIXIMAB-DYYB
     Dosage: 900 MG, EVERY 5 WEEK
     Route: 042
     Dates: start: 20210213
  3. INFLECTRA [Suspect]
     Active Substance: INFLIXIMAB-DYYB
     Dosage: 900 MG EVERY 5 WEEK
     Route: 042
     Dates: start: 20220810
  4. INFLECTRA [Suspect]
     Active Substance: INFLIXIMAB-DYYB
     Dosage: 900 MG EVERY 5 WEEK
     Route: 042
     Dates: start: 20220810
  5. INFLECTRA [Suspect]
     Active Substance: INFLIXIMAB-DYYB
     Dosage: 900 MG EVERY 5 WEEK
     Route: 042
     Dates: start: 20220914
  6. INFLECTRA [Suspect]
     Active Substance: INFLIXIMAB-DYYB
     Dosage: 900 MG EVERY 5 WEEK
     Route: 042
     Dates: start: 20220914
  7. INFLECTRA [Suspect]
     Active Substance: INFLIXIMAB-DYYB
     Dosage: 900 MG EVERY 5 WEEK
     Route: 042
     Dates: start: 20220914
  8. INFLECTRA [Suspect]
     Active Substance: INFLIXIMAB-DYYB
     Dosage: 900 MG EVERY 5 WEEK
     Route: 042
     Dates: start: 20221017
  9. INFLECTRA [Suspect]
     Active Substance: INFLIXIMAB-DYYB
     Dosage: 900 MG EVERY 5 WEEK
     Route: 042
     Dates: start: 20221123
  10. INFLECTRA [Suspect]
     Active Substance: INFLIXIMAB-DYYB
     Dosage: 900 MG EVERY 5 WEEK
     Route: 042
     Dates: start: 20221228
  11. INFLECTRA [Suspect]
     Active Substance: INFLIXIMAB-DYYB
     Dosage: 900 MG EVERY 5 WEEK
     Route: 042
     Dates: start: 20221228
  12. INFLECTRA [Suspect]
     Active Substance: INFLIXIMAB-DYYB
     Dosage: 900 MG EVERY 5 WEEK
     Route: 042
     Dates: start: 20230201
  13. INFLECTRA [Suspect]
     Active Substance: INFLIXIMAB-DYYB
     Dosage: 900 MG EVERY 5 WEEK
     Route: 042
     Dates: start: 20230201
  14. INFLECTRA [Suspect]
     Active Substance: INFLIXIMAB-DYYB
     Dosage: 900 MG EVERY 5 WEEK
     Route: 042
     Dates: start: 20230308

REACTIONS (8)
  - Weight fluctuation [Unknown]
  - Therapeutic response shortened [Unknown]
  - Drug intolerance [Not Recovered/Not Resolved]
  - Condition aggravated [Recovering/Resolving]
  - Sinusitis [Unknown]
  - Pyrexia [Recovering/Resolving]
  - Off label use [Unknown]
  - Off label use [Unknown]

NARRATIVE: CASE EVENT DATE: 20210213
